FAERS Safety Report 6689312-9 (Version None)
Quarter: 2010Q2

REPORT INFORMATION
  Report Type: 
  Country: None (occurrence: None)
  Receive Date: 20100420
  Receipt Date: 20100407
  Transmission Date: 20101027
  Serious: Yes (Other)
  Sender: FDA-Public Use
  Company Number: US-ELI_LILLY_AND_COMPANY-US201004003338

PATIENT
  Age: 81 Year
  Sex: Male

DRUGS (2)
  1. CYMBALTA [Suspect]
     Dosage: 90 MG, UNK
  2. CYMBALTA [Suspect]
     Dosage: 1 D/F, UNK

REACTIONS (5)
  - ANXIETY [None]
  - CARDIAC FAILURE [None]
  - DRUG WITHDRAWAL SYNDROME [None]
  - POLLAKIURIA [None]
  - TACHYCARDIA [None]
